FAERS Safety Report 16224803 (Version 2)
Quarter: 2019Q2

REPORT INFORMATION
  Report Type: Spontaneous
  Country: IT (occurrence: IT)
  Receive Date: 20190422
  Receipt Date: 20190619
  Transmission Date: 20190711
  Serious: Yes (Other)
  Sender: FDA-Public Use
  Company Number: IT-MYLANLABS-2019M1036884

PATIENT
  Age: 67 Year
  Sex: Male

DRUGS (4)
  1. FUROSEMIDE. [Suspect]
     Active Substance: FUROSEMIDE
     Indication: PRODUCT USED FOR UNKNOWN INDICATION
     Dosage: UNK
  2. BECLOMETASONE [Suspect]
     Active Substance: BECLOMETHASONE DIPROPIONATE
     Indication: PRODUCT USED FOR UNKNOWN INDICATION
     Dosage: UNK
  3. LACIDIPINE [Concomitant]
     Active Substance: LACIDIPINE
     Dosage: UNK
  4. EPROSARTAN MESILATE W/HYDROCHLOROTHIAZIDE [Concomitant]
     Dosage: UNK

REACTIONS (6)
  - Erythema [Unknown]
  - Angioedema [Unknown]
  - Oedema peripheral [Unknown]
  - Conjunctival hyperaemia [Unknown]
  - Ocular hyperaemia [Unknown]
  - Acquired macroglossia [Unknown]

NARRATIVE: CASE EVENT DATE: 20181026
